FAERS Safety Report 6579158-4 (Version None)
Quarter: 2010Q1

REPORT INFORMATION
  Report Type: 
  Country: None (occurrence: None)
  Receive Date: 20100212
  Receipt Date: 20100203
  Transmission Date: 20100710
  Serious: Yes (Hospitalization)
  Sender: FDA-Public Use
  Company Number: US-JNJFOC-20100203613

PATIENT
  Sex: Female
  Weight: 32.93 kg

DRUGS (21)
  1. INFLIXIMAB [Suspect]
     Indication: INFLAMMATORY BOWEL DISEASE
     Route: 042
  2. THALIDOMIDE [Concomitant]
  3. OMEGA 3 FATTY ACIDS [Concomitant]
  4. MUTIVITAMINS [Concomitant]
  5. FERROUS SULFATE TAB [Concomitant]
  6. ASPIRIN [Concomitant]
  7. AUGMENTIN [Concomitant]
  8. PERCOCET [Concomitant]
  9. ATIVAN [Concomitant]
  10. TYLENOL-500 [Concomitant]
  11. KENALOG [Concomitant]
  12. FLUCONAZOLE [Concomitant]
  13. ACETAMINOPHEN W/ CODEINE TAB [Concomitant]
  14. NYSTATIN [Concomitant]
  15. ZINC SULFATE [Concomitant]
  16. KEFLEX [Concomitant]
  17. KETOCONAZOLE [Concomitant]
  18. FLUOCINOLONE ACETONIDE [Concomitant]
  19. LOTRISONE [Concomitant]
  20. TRIAMCINOLONE [Concomitant]
  21. ANTIBIOTICS [Concomitant]
     Indication: INFLAMMATORY BOWEL DISEASE

REACTIONS (1)
  - GASTROINTESTINAL STOMA COMPLICATION [None]
